FAERS Safety Report 11420158 (Version 1)
Quarter: 2015Q3

REPORT INFORMATION
  Report Type: Spontaneous
  Country: CN (occurrence: CN)
  Receive Date: 20150826
  Receipt Date: 20150826
  Transmission Date: 20151125
  Serious: Yes (Hospitalization, Other)
  Sender: FDA-Public Use
  Company Number: CN-GLAXOSMITHKLINE-CN2015GSK120989

PATIENT
  Age: 40 Year
  Sex: Male
  Weight: 103 kg

DRUGS (1)
  1. HEPTODIN [Suspect]
     Active Substance: LAMIVUDINE
     Indication: HEPATITIS B
     Dosage: UNK
     Route: 048
     Dates: start: 2009

REACTIONS (8)
  - Hepatitis B [Recovered/Resolved]
  - Ascites [Recovered/Resolved]
  - Peripheral swelling [Recovered/Resolved]
  - Blood bilirubin increased [Recovered/Resolved]
  - Drug dose omission [Unknown]
  - Hepatitis B DNA increased [Recovered/Resolved]
  - Alpha 1 foetoprotein increased [Recovered/Resolved]
  - Abdominal distension [Recovered/Resolved]

NARRATIVE: CASE EVENT DATE: 2009
